FAERS Safety Report 7131909-6 (Version None)
Quarter: 2010Q4

REPORT INFORMATION
  Report Type: 
  Country: None (occurrence: None)
  Receive Date: 20101202
  Receipt Date: 20101129
  Transmission Date: 20110411
  Serious: Yes (Other)
  Sender: FDA-Public Use
  Company Number: US-SHIRE-ALL1-2010-06214

PATIENT
  Sex: Male
  Weight: 102.4 kg

DRUGS (1)
  1. FOSRENOL [Suspect]
     Indication: HYPERPHOSPHATAEMIA
     Dosage: 1000 MG, OTHER (WITH EACH MEAL)
     Route: 048
     Dates: start: 20100901

REACTIONS (2)
  - HYPOTENSION [None]
  - LARGE INTESTINAL HAEMORRHAGE [None]
